FAERS Safety Report 7919657-3 (Version None)
Quarter: 2011Q4

REPORT INFORMATION
  Report Type: 
  Country: None (occurrence: None)
  Receive Date: 20111115
  Receipt Date: 20111108
  Transmission Date: 20120403
  Serious: Yes (Hospitalization, Other)
  Sender: FDA-Public Use
  Company Number: ACO_27183_2011

PATIENT
  Age: 78 Year
  Sex: Female

DRUGS (3)
  1. AMPYRA [Suspect]
     Indication: GAIT DISTURBANCE
     Dosage: 10 MG, Q 12 HRS, ORAL
     Route: 048
     Dates: start: 20100823
  2. IMURAN [Concomitant]
  3. DITROPAN [Concomitant]

REACTIONS (2)
  - BLEPHAROSPASM [None]
  - CONVULSION [None]
